FAERS Safety Report 16731582 (Version 3)
Quarter: 2020Q4

REPORT INFORMATION
  Report Type: Spontaneous
  Country: US (occurrence: US)
  Receive Date: 20190822
  Receipt Date: 20201202
  Transmission Date: 20210113
  Serious: Yes (Other)
  Sender: FDA-Public Use
  Company Number: US-JNJFOC-20190818985

PATIENT
  Age: 30 Year
  Sex: Female
  Weight: 57.2 kg

DRUGS (4)
  1. STELARA [Suspect]
     Active Substance: USTEKINUMAB
     Indication: CROHN^S DISEASE
     Route: 058
  2. INSULIN [Concomitant]
     Active Substance: INSULIN NOS
  3. INSULIN                            /00646001/ [Concomitant]
     Active Substance: INSULIN NOS
  4. STELARA [Suspect]
     Active Substance: USTEKINUMAB

REACTIONS (3)
  - Ileostomy closure [Unknown]
  - Therapy non-responder [Unknown]
  - Crohn^s disease [Unknown]

NARRATIVE: CASE EVENT DATE: 20181017
